FAERS Safety Report 10853794 (Version 1)
Quarter: 2015Q1

REPORT INFORMATION
  Report Type: Spontaneous
  Country: CA (occurrence: CA)
  Receive Date: 20150223
  Receipt Date: 20150223
  Transmission Date: 20150721
  Serious: Yes (Death, Hospitalization, Other)
  Sender: FDA-Public Use
  Company Number: CA-JNJFOC-20150211528

PATIENT
  Age: 73 Year
  Sex: Female
  Weight: 115 kg

DRUGS (6)
  1. ELTROXIN [Concomitant]
     Active Substance: LEVOTHYROXINE
     Indication: HYPOTHYROIDISM
     Route: 065
  2. RANITIDINE [Concomitant]
     Active Substance: RANITIDINE\RANITIDINE HYDROCHLORIDE
     Indication: GASTROOESOPHAGEAL REFLUX DISEASE
     Route: 065
  3. MICARDIS [Concomitant]
     Active Substance: TELMISARTAN
     Indication: HYPERTENSION
     Route: 065
  4. DENOSUMAB [Suspect]
     Active Substance: DENOSUMAB
     Indication: OSTEOPOROSIS POSTMENOPAUSAL
     Route: 058
  5. LORAZEPAM. [Concomitant]
     Active Substance: LORAZEPAM
     Indication: ANXIETY
     Route: 065
  6. XARELTO [Suspect]
     Active Substance: RIVAROXABAN
     Indication: PRODUCT USED FOR UNKNOWN INDICATION
     Route: 048

REACTIONS (22)
  - Hypotension [Fatal]
  - Pallor [Fatal]
  - Urine output decreased [Fatal]
  - White blood cell count increased [Fatal]
  - Body temperature increased [Fatal]
  - Troponin increased [Fatal]
  - Asthenia [Fatal]
  - Dyspnoea [Fatal]
  - Deep vein thrombosis [Fatal]
  - Hepatic cyst [Fatal]
  - Gastrointestinal haemorrhage [Fatal]
  - Chest pain [Fatal]
  - Gallbladder disorder [Fatal]
  - Lymphoma [Fatal]
  - Pulmonary embolism [Fatal]
  - Renal impairment [Fatal]
  - Haemoglobin decreased [Fatal]
  - Back pain [Fatal]
  - Melaena [Fatal]
  - Pyelonephritis [Fatal]
  - Septic shock [Fatal]
  - Urinary tract infection [Fatal]
